FAERS Safety Report 21989715 (Version 1)
Quarter: 2023Q1

REPORT INFORMATION
  Report Type: Spontaneous
  Country: FR (occurrence: FR)
  Receive Date: 20230214
  Receipt Date: 20230214
  Transmission Date: 20230418
  Serious: Yes (Other)
  Sender: FDA-Public Use
  Company Number: FR-BRACCO-2023FR00485

PATIENT
  Sex: Female

DRUGS (1)
  1. MULTIHANCE [Suspect]
     Active Substance: GADOBENATE DIMEGLUMINE
     Indication: Magnetic resonance imaging breast
     Dosage: UNK, SINGLE
     Route: 042

REACTIONS (2)
  - Angioedema [Recovered/Resolved]
  - Blood pressure decreased [Recovered/Resolved]
